FAERS Safety Report 15007862 (Version 1)
Quarter: 2018Q2

REPORT INFORMATION
  Report Type: Spontaneous
  Country: US (occurrence: US)
  Receive Date: 20180613
  Receipt Date: 20180613
  Transmission Date: 20180711
  Serious: Yes (Hospitalization)
  Sender: FDA-Public Use
  Company Number: US-VERTEX PHARMACEUTICALS-2018-003894

PATIENT
  Sex: Male
  Weight: 39 kg

DRUGS (2)
  1. ORKAMBI [Suspect]
     Active Substance: IVACAFTOR\LUMACAFTOR
     Indication: CYSTIC FIBROSIS
     Dosage: 100/125MG TABLETS, BID
     Route: 048
     Dates: start: 201708
  2. PULMOZYME [Concomitant]
     Active Substance: DORNASE ALFA
     Dosage: 2.5 MG, BID

REACTIONS (2)
  - Staphylococcus test positive [Unknown]
  - Croup infectious [Unknown]

NARRATIVE: CASE EVENT DATE: 2018
